FAERS Safety Report 5340961-X (Version None)
Quarter: 2007Q2

REPORT INFORMATION
  Report Type: 
  Country: None (occurrence: None)
  Receive Date: 20070405
  Receipt Date: 20070119
  Transmission Date: 20071010
  Serious: No
  Sender: FDA-Public Use
  Company Number: US200701004475

PATIENT
  Age: 87 Year
  Sex: Female

DRUGS (9)
  1. CYMBALTA [Suspect]
     Dosage: 30 MG, 2/D;
     Dates: start: 20061208
  2. AVAPRO [Concomitant]
  3. PREDNISONE TAB [Concomitant]
  4. ZYRTEC-D 12 HOUR [Concomitant]
  5. LIPITOR [Concomitant]
  6. SINGULAIR [Concomitant]
  7. CELEBREX [Concomitant]
  8. PREVACID [Concomitant]
  9. LEVAQUIN [Concomitant]

REACTIONS (2)
  - DEPRESSION [None]
  - HYPERHIDROSIS [None]
